FAERS Safety Report 6734035-0 (Version None)
Quarter: 2010Q2

REPORT INFORMATION
  Report Type: 
  Country: None (occurrence: None)
  Receive Date: 20100520
  Receipt Date: 20100511
  Transmission Date: 20101027
  Serious: Yes (Disabling)
  Sender: FDA-Public Use
  Company Number: FR-AMGEN-QUU412410

PATIENT
  Sex: Male

DRUGS (1)
  1. ENBREL [Suspect]
     Indication: ANKYLOSING SPONDYLITIS
     Dosage: 50 MG (FREQUENCY UNKNOWN)
     Route: 058

REACTIONS (2)
  - INCORRECT STORAGE OF DRUG [None]
  - PAIN IN EXTREMITY [None]
